FAERS Safety Report 25462178 (Version 1)
Quarter: 2025Q2

REPORT INFORMATION
  Report Type: Spontaneous
  Country: US (occurrence: None)
  Receive Date: 20250619
  Receipt Date: 20250619
  Transmission Date: 20250717
  Serious: Yes (Life-Threatening, Hospitalization)
  Sender: FDA-CTU
  Company Number: None

PATIENT
  Age: 47 Year
  Sex: Female

DRUGS (4)
  1. LOPERAMIDE [Suspect]
     Active Substance: LOPERAMIDE
     Dosage: FREQUENCY : DAILY;?
     Route: 048
     Dates: start: 20250608, end: 20250615
  2. LIDOCAINE [Suspect]
     Active Substance: LIDOCAINE
  3. AMIODARONE [Suspect]
     Active Substance: AMIODARONE
  4. SODIUM BICARBONATE [Suspect]
     Active Substance: SODIUM BICARBONATE

REACTIONS (3)
  - Syncope [None]
  - Cardiac arrest [None]
  - Extra dose administered [None]

NARRATIVE: CASE EVENT DATE: 20250615
